FAERS Safety Report 7573250-3 (Version None)
Quarter: 2011Q2

REPORT INFORMATION
  Report Type: 
  Country: None (occurrence: None)
  Receive Date: 20110627
  Receipt Date: 20110614
  Transmission Date: 20111010
  Serious: Yes (Other)
  Sender: FDA-Public Use
  Company Number: PHHY2011CA51851

PATIENT
  Sex: Female

DRUGS (15)
  1. MELOXICAM [Concomitant]
     Dosage: 15 MG,
     Route: 048
  2. FERROUS GLUCONATE [Concomitant]
     Dosage: 300 MG, TID
  3. ACTONEL [Concomitant]
     Dosage: 150 MG, ONCE MONTHLY
     Route: 048
  4. ZOLEDRONIC ACID [Suspect]
     Indication: OSTEOPOROSIS
     Dosage: 5 MG/ 100 ML
     Route: 042
     Dates: start: 20100602
  5. PROGESTERONE [Concomitant]
     Dosage: 10 %,
  6. CELEXA [Concomitant]
     Dosage: 40 MG,
     Route: 048
  7. TESTOSTERONE [Concomitant]
     Dosage: 1 MG,
  8. PRASTERONE [Concomitant]
     Dosage: 10 MG,
  9. TYLENOL-500 [Concomitant]
  10. CLONAZEPAM [Concomitant]
     Dosage: 0.5 MG,
     Route: 048
  11. PERINDOPRIL ERBUMINE [Concomitant]
     Dosage: 8 MG,
     Route: 048
  12. EVISTA [Concomitant]
     Dosage: 60 MG,
     Route: 048
  13. AMLODIPINE BESYLATE [Concomitant]
     Dosage: 10 MG,
     Route: 048
  14. ZOLEDRONIC ACID [Suspect]
     Dosage: 5 MG/ 100ML
     Route: 042
     Dates: start: 20110608
  15. ASPIRIN [Concomitant]
     Dosage: 325 MG,

REACTIONS (5)
  - COLD SWEAT [None]
  - MALAISE [None]
  - PRESYNCOPE [None]
  - HEART RATE DECREASED [None]
  - BLOOD PRESSURE DECREASED [None]
